FAERS Safety Report 8464677-6 (Version None)
Quarter: 2012Q2

REPORT INFORMATION
  Report Type: 
  Country: None (occurrence: None)
  Receive Date: 20120626
  Receipt Date: 20120613
  Transmission Date: 20120825
  Serious: Yes (Other)
  Sender: FDA-Public Use
  Company Number: NL-RANBAXY-2012R1-57257

PATIENT
  Sex: Female

DRUGS (3)
  1. PREDNISONE TAB [Suspect]
     Indication: ASTHMA
     Dosage: 15MG/DAY
     Route: 065
  2. NAPROXEN [Suspect]
     Indication: PAIN
     Dosage: 500MG TID
     Route: 065
  3. NAPROXEN [Suspect]
     Indication: MYOPATHY

REACTIONS (2)
  - HYPOALDOSTERONISM [None]
  - CUSHING'S SYNDROME [None]
